FAERS Safety Report 5145911-7 (Version None)
Quarter: 2006Q4

REPORT INFORMATION
  Report Type: 
  Country: None (occurrence: None)
  Receive Date: 20061108
  Receipt Date: 20061004
  Transmission Date: 20070319
  Serious: Yes (Hospitalization)
  Sender: FDA-Public Use
  Company Number: US-AMGEN-US195988

PATIENT
  Sex: Female

DRUGS (3)
  1. ENBREL [Suspect]
     Indication: DRUG USE FOR UNKNOWN INDICATION
     Route: 058
     Dates: start: 20040101
  2. ADVIL [Concomitant]
     Route: 065
  3. MEDROL [Concomitant]
     Route: 065

REACTIONS (9)
  - HYPOKALAEMIA [None]
  - INJECTION SITE ERYTHEMA [None]
  - INJECTION SITE REACTION [None]
  - JOINT STIFFNESS [None]
  - NEPHROLITHIASIS [None]
  - NIGHT SWEATS [None]
  - PYELONEPHRITIS [None]
  - RENAL FAILURE [None]
  - UROSEPSIS [None]
